FAERS Safety Report 6016870-X (Version None)
Quarter: 2008Q4

REPORT INFORMATION
  Report Type: 
  Country: None (occurrence: None)
  Receive Date: 20081219
  Receipt Date: 20071010
  Transmission Date: 20090506
  Serious: Yes (Hospitalization)
  Sender: FDA-Public Use
  Company Number: TEST00307034470

PATIENT
  Age: 2 Year
  Sex: Female

DRUGS (2)
  1. TESTOGEL (TESTOSTERONE 1% GEL) [Suspect]
     Indication: DRUG USE FOR UNKNOWN INDICATION
     Dosage: UNKNOWN DAILY TRANSCUTANEOUS
  2. TESTOGEL (TESTOSTERONE 1% GEL) [Suspect]
     Indication: ILL-DEFINED DISORDER
     Dosage: UNKNOWN DAILY TRANSCUTANEOUS

REACTIONS (5)
  - ACCIDENTAL EXPOSURE [None]
  - ENLARGED CLITORIS [None]
  - HAIR GROWTH ABNORMAL [None]
  - HIRSUTISM [None]
  - VIRILISM [None]
